FAERS Safety Report 5047006-X (Version None)
Quarter: 2006Q2

REPORT INFORMATION
  Report Type: 
  Country: None (occurrence: None)
  Receive Date: 20060630
  Receipt Date: 20060627
  Transmission Date: 20061013
  Serious: No
  Sender: FDA-Public Use
  Company Number: E2090-00035-SPO-GB

PATIENT
  Age: 40 Year
  Sex: Female

DRUGS (4)
  1. ZONEGRAN [Suspect]
     Indication: EPILEPSY
     Dosage: 150 MG, 2 IN 1 D, ORAL
     Route: 048
  2. PHENYTOIN [Concomitant]
  3. KEPPRA [Concomitant]
  4. TOPIRAMATE [Concomitant]

REACTIONS (1)
  - COMA [None]
